FAERS Safety Report 9919694 (Version 1)
Quarter: 2014Q1

REPORT INFORMATION
  Report Type: Report from Study
  Country: PE (occurrence: PE)
  Receive Date: 20140224
  Receipt Date: 20140224
  Transmission Date: 20141002
  Serious: Yes (Hospitalization, Other)
  Sender: FDA-Public Use
  Company Number: PE-BRISTOL-MYERS SQUIBB COMPANY-20242780

PATIENT
  Age: 78 Year
  Sex: Female

DRUGS (3)
  1. GLUCOVANCE TABS 5 MG/500 MG [Suspect]
     Indication: DIABETES MELLITUS
     Dosage: 1 DF: 5 MG/500 MG
     Route: 048
  2. ASPIRIN [Concomitant]
  3. ATORVASTATIN [Concomitant]

REACTIONS (2)
  - Limb injury [Unknown]
  - Infection [Unknown]
